FAERS Safety Report 9469334 (Version 1)
Quarter: 2013Q3

REPORT INFORMATION
  Report Type: Spontaneous
  Country: US (occurrence: None)
  Receive Date: 20130815
  Receipt Date: 20130815
  Transmission Date: 20140515
  Serious: Yes (Other)
  Sender: FDA-Public Use
  Company Number: USA/USA/13/0034058

PATIENT
  Age: 27 Year
  Sex: Female

DRUGS (11)
  1. CIPROFLOXACIN [Suspect]
     Indication: PROPHYLAXIS
     Route: 048
  2. DIGOXIN (DIGOXIN) [Suspect]
     Indication: PRODUCT USED FOR UNKNOWN INDICATION
     Route: 048
  3. LANSOPRAZOLE DELAYED-RELEASE CAPSULE (LANSOPRAZOLE) [Concomitant]
  4. METOPROLOL SUCCINATE (METOPROLOL SUCCINATE) [Concomitant]
  5. NAPROXEN (NAPROXEN) [Concomitant]
  6. ORTHO TRI-CYCLEN (CILFEST) [Concomitant]
  7. ACETYL SALICYLIC ACID (ACETYLSALCYLIC ACID) [Concomitant]
  8. LOSARTAN (LOSARTAN) [Concomitant]
  9. TOPIRAMATE (TOPIRAMATE) [Concomitant]
  10. LORATIDINE (LORATIDINE) [Concomitant]
  11. TRAZODONE (TRAZODONE) [Concomitant]

REACTIONS (4)
  - Toxicity to various agents [None]
  - Nausea [None]
  - Decreased appetite [None]
  - Drug interaction [None]
